FAERS Safety Report 20499896 (Version 2)
Quarter: 2022Q2

REPORT INFORMATION
  Report Type: Spontaneous
  Country: CH (occurrence: CH)
  Receive Date: 20220222
  Receipt Date: 20220509
  Transmission Date: 20220721
  Serious: Yes (Other)
  Sender: FDA-Public Use
  Company Number: CH-AMGEN-CHESP2022026673

PATIENT
  Sex: Female

DRUGS (2)
  1. PROLIA [Suspect]
     Active Substance: DENOSUMAB
     Indication: Osteoporosis
     Dosage: UNK
     Route: 065
  2. CLINDAMYCIN [Concomitant]
     Active Substance: CLINDAMYCIN

REACTIONS (16)
  - Osteomyelitis bacterial [Unknown]
  - Cardiomyopathy [Unknown]
  - Device related infection [Unknown]
  - Osteonecrosis of jaw [Unknown]
  - Shoulder arthroplasty [Unknown]
  - Osteoarthritis [Unknown]
  - Osteonecrosis [Unknown]
  - Forearm fracture [Unknown]
  - Upper limb fracture [Unknown]
  - Spinal compression fracture [Unknown]
  - Spinal fusion surgery [Unknown]
  - Post procedural complication [Unknown]
  - Joint effusion [Unknown]
  - Sciatica [Unknown]
  - Extrasystoles [Unknown]
  - Mouth ulceration [Unknown]

NARRATIVE: CASE EVENT DATE: 20170101
